FAERS Safety Report 24351106 (Version 1)
Quarter: 2024Q3

REPORT INFORMATION
  Report Type: Report from Study
  Country: IT (occurrence: IT)
  Receive Date: 20240923
  Receipt Date: 20240923
  Transmission Date: 20241017
  Serious: No
  Sender: ROCHE
  Company Number: IT-ROCHE-2220356

PATIENT
  Age: 64 Year
  Sex: Female
  Weight: 75.0 kg

DRUGS (50)
  1. HERCEPTIN [Suspect]
     Active Substance: TRASTUZUMAB
     Indication: HER2 positive breast cancer
     Route: 042
     Dates: start: 20180129, end: 20180129
  2. HERCEPTIN [Suspect]
     Active Substance: TRASTUZUMAB
     Route: 042
     Dates: start: 20180219, end: 20180219
  3. HERCEPTIN [Suspect]
     Active Substance: TRASTUZUMAB
     Route: 042
     Dates: start: 20180312, end: 20180618
  4. HERCEPTIN [Suspect]
     Active Substance: TRASTUZUMAB
     Route: 042
     Dates: start: 20181004, end: 20181004
  5. HERCEPTIN [Suspect]
     Active Substance: TRASTUZUMAB
     Route: 042
     Dates: start: 20181011, end: 20181122
  6. PERJETA [Suspect]
     Active Substance: PERTUZUMAB
     Indication: HER2 positive breast cancer
     Route: 042
     Dates: start: 20180129, end: 20180129
  7. PERJETA [Suspect]
     Active Substance: PERTUZUMAB
     Route: 042
     Dates: start: 20180219, end: 20180618
  8. KADCYLA [Suspect]
     Active Substance: ADO-TRASTUZUMAB EMTANSINE
     Indication: HER2 positive breast cancer
     Route: 042
     Dates: start: 20180802, end: 20180823
  9. KADCYLA [Suspect]
     Active Substance: ADO-TRASTUZUMAB EMTANSINE
     Route: 042
     Dates: start: 20180913, end: 20180913
  10. TYKERB [Suspect]
     Active Substance: LAPATINIB DITOSYLATE
     Indication: HER2 positive breast cancer
     Route: 048
     Dates: start: 20200206, end: 20200915
  11. TAXOTERE [Suspect]
     Active Substance: DOCETAXEL
     Indication: HER2 positive breast cancer
     Route: 042
     Dates: start: 20180219, end: 20180219
  12. TAXOTERE [Suspect]
     Active Substance: DOCETAXEL
     Route: 042
     Dates: start: 20180312, end: 20180618
  13. XELODA [Suspect]
     Active Substance: CAPECITABINE
     Indication: HER2 positive breast cancer
     Dosage: FREQUENCY TEXT:OTHER
     Route: 048
     Dates: start: 20200206, end: 20200311
  14. XELODA [Suspect]
     Active Substance: CAPECITABINE
     Route: 048
     Dates: start: 20200319, end: 20200401
  15. XELODA [Suspect]
     Active Substance: CAPECITABINE
     Dosage: FREQUENCY TEXT:OTHER
     Route: 048
     Dates: start: 20200409, end: 20200915
  16. NAVELBINE [Suspect]
     Active Substance: VINORELBINE TARTRATE
     Indication: HER2 positive breast cancer
     Route: 042
     Dates: start: 20181004, end: 20181004
  17. NAVELBINE [Suspect]
     Active Substance: VINORELBINE TARTRATE
     Route: 042
     Dates: start: 20181011, end: 20181122
  18. NAVELBINE [Suspect]
     Active Substance: VINORELBINE TARTRATE
     Dosage: FREQUENCY TEXT:OTHER
     Route: 042
     Dates: start: 20190517, end: 20190617
  19. NAVELBINE [Suspect]
     Active Substance: VINORELBINE TARTRATE
     Dosage: FREQUENCY TEXT:OTHER
     Route: 042
     Dates: start: 20190708, end: 20190708
  20. NAVELBINE [Suspect]
     Active Substance: VINORELBINE TARTRATE
     Dosage: FREQUENCY TEXT:OTHER
     Route: 042
     Dates: start: 20190729, end: 20191216
  21. NAVELBINE [Suspect]
     Active Substance: VINORELBINE TARTRATE
     Dosage: FREQUENCY TEXT:OTHER
     Route: 042
     Dates: start: 20181129, end: 20190515
  22. ONTRUZANT [Suspect]
     Active Substance: TRASTUZUMAB-DTTB
     Indication: HER2 positive breast cancer
     Route: 042
     Dates: start: 20181129, end: 20191216
  23. TRASTUZUMAB [Suspect]
     Active Substance: TRASTUZUMAB
     Indication: HER2 positive breast cancer
     Route: 042
     Dates: start: 20181129, end: 20191216
  24. ZOLEDRONIC ACID [Concomitant]
     Active Substance: ZOLEDRONIC ACID
     Route: 042
     Dates: start: 20181018, end: 20200227
  25. METOCLOPRAMIDE HYDROCHLORIDE [Concomitant]
     Active Substance: METOCLOPRAMIDE HYDROCHLORIDE
     Indication: Nausea
     Dosage: FREQUENCY TEXT:PRN
     Route: 048
     Dates: start: 201809
  26. ALIZAPRIDE [Concomitant]
     Active Substance: ALIZAPRIDE
     Dosage: 1 BOTTLE
     Route: 042
     Dates: start: 20180911, end: 20181122
  27. ACETAMINOPHEN [Concomitant]
     Active Substance: ACETAMINOPHEN
     Indication: Rib fracture
     Dosage: ONGOING = CHECKED
     Dates: start: 20180415
  28. ACETAMINOPHEN [Concomitant]
     Active Substance: ACETAMINOPHEN
     Route: 048
     Dates: start: 20180716, end: 20180801
  29. AMIODARONE [Concomitant]
     Active Substance: AMIODARONE
     Indication: Tachyarrhythmia
     Route: 048
     Dates: start: 20191216, end: 202001
  30. BISOPROLOL [Concomitant]
     Active Substance: BISOPROLOL\BISOPROLOL FUMARATE
     Indication: Hypertension
     Dosage: ONGOING = CHECKED
     Route: 048
     Dates: start: 20180528
  31. BISOPROLOL [Concomitant]
     Active Substance: BISOPROLOL\BISOPROLOL FUMARATE
     Dosage: ONGOING = CHECKED
     Route: 048
     Dates: start: 20180129, end: 20180527
  32. TRIMETON [Concomitant]
     Active Substance: CHLORPHENIRAMINE MALEATE
     Dosage: ONGOING = NOT CHECKED?1 BOTTLE
     Route: 042
     Dates: start: 20180219, end: 20180312
  33. GRANISETRON [Concomitant]
     Active Substance: GRANISETRON
  34. FLECAINIDE [Concomitant]
     Active Substance: FLECAINIDE
     Indication: Tachyarrhythmia
     Route: 048
     Dates: start: 20191216
  35. HYDROCORTISONE SODIUM SUCCINATE [Concomitant]
     Active Substance: HYDROCORTISONE SODIUM SUCCINATE
     Dosage: ONGOING = NOT CHECKED
     Route: 042
     Dates: start: 20180219, end: 20180312
  36. CALCIFEDIOL [Concomitant]
     Active Substance: CALCIFEDIOL
     Dosage: FREQUENCY TEXT:ONCE
     Route: 048
     Dates: start: 20181129, end: 20181129
  37. SODIUM CHLORIDE [Concomitant]
     Active Substance: SODIUM CHLORIDE
     Indication: Decreased appetite
     Route: 042
     Dates: start: 201909, end: 201910
  38. LACTATED RINGERS SOLUTION [Concomitant]
     Active Substance: CALCIUM CHLORIDE\POTASSIUM CHLORIDE\SODIUM CHLORIDE\SODIUM LACTATE
     Dosage: FREQUENCY TEXT:OTHER
     Route: 042
     Dates: start: 20190701, end: 20190701
  39. CODEINE [Concomitant]
     Active Substance: CODEINE
     Dosage: ONGOING = NOT CHECKED
     Dates: start: 20180728, end: 20180912
  40. PREDNISONE [Concomitant]
     Active Substance: PREDNISONE
     Route: 048
     Dates: start: 20180913, end: 20180920
  41. PANTOPRAZOLE SODIUM [Concomitant]
     Active Substance: PANTOPRAZOLE SODIUM
     Route: 048
     Dates: start: 201809
  42. HEPARIN SODIUM [Concomitant]
     Active Substance: HEPARIN SODIUM
     Dosage: ONGOING = NOT CHECKED
     Route: 042
     Dates: start: 20180129, end: 20180913
  43. DENOSUMAB [Concomitant]
     Active Substance: DENOSUMAB
     Indication: Prophylaxis
     Route: 058
     Dates: start: 20200521
  44. HEPARIN [Concomitant]
     Active Substance: HEPARIN SODIUM
     Route: 042
     Dates: start: 20181011, end: 20181122
  45. DEXAMETHASONE [Concomitant]
     Active Substance: DEXAMETHASONE
     Route: 048
     Dates: start: 20190402, end: 20190411
  46. DEXAMETHASONE [Concomitant]
     Active Substance: DEXAMETHASONE
     Route: 030
     Dates: start: 20190326, end: 20190401
  47. PREDNISONE [Concomitant]
     Active Substance: PREDNISONE
     Dosage: ONGOING = NOT CHECKED
     Route: 048
     Dates: start: 20180129, end: 20180618
  48. CHLORPHENIRAMINE MALEATE [Concomitant]
     Active Substance: CHLORPHENIRAMINE MALEATE
     Dosage: 1 BOTTLE
     Route: 042
     Dates: start: 20181004, end: 20181004
  49. MANNITOL [Concomitant]
     Active Substance: MANNITOL
     Dosage: 250
     Route: 042
     Dates: start: 20190326, end: 20190401
  50. RANITIDINE [Concomitant]
     Active Substance: RANITIDINE
     Dosage: ONGOING = NOT CHECKED
     Route: 048
     Dates: start: 20180129, end: 20180618

REACTIONS (9)
  - Palmar-plantar erythrodysaesthesia syndrome [Recovered/Resolved]
  - Dyspnoea [Unknown]
  - Pleural effusion [Not Recovered/Not Resolved]
  - Dyspnoea exertional [Recovered/Resolved with Sequelae]
  - Bone pain [Recovered/Resolved with Sequelae]
  - Pharyngitis [Recovered/Resolved]
  - Cough [Recovered/Resolved]
  - Cough [Recovered/Resolved with Sequelae]
  - Diarrhoea [Recovered/Resolved]

NARRATIVE: CASE EVENT DATE: 20180409
